FAERS Safety Report 6439556-6 (Version None)
Quarter: 2009Q4

REPORT INFORMATION
  Report Type: 
  Country: None (occurrence: None)
  Receive Date: 20091113
  Receipt Date: 20091110
  Transmission Date: 20100525
  Serious: Yes (Other)
  Sender: FDA-Public Use
  Company Number: A0816568A

PATIENT
  Age: 36 Year
  Sex: Male

DRUGS (1)
  1. AVANDIA [Suspect]
     Indication: DIABETES MELLITUS
     Dosage: 4MG TWICE PER DAY
     Route: 048
     Dates: start: 20050712, end: 20070101

REACTIONS (4)
  - CEREBROVASCULAR ACCIDENT [None]
  - MULTIPLE FRACTURES [None]
  - OSTEOGENESIS IMPERFECTA [None]
  - VISUAL IMPAIRMENT [None]
